FAERS Safety Report 5123733-0 (Version None)
Quarter: 2006Q3

REPORT INFORMATION
  Report Type: 
  Country: None (occurrence: None)
  Receive Date: 20060811
  Receipt Date: 20060523
  Transmission Date: 20061208
  Serious: No
  Sender: FDA-Public Use
  Company Number: S06-USA-01928-01

PATIENT
  Age: 70 Year
  Sex: Female

DRUGS (12)
  1. NAMENDA [Suspect]
     Indication: DEMENTIA
     Dosage: 5 MG QD PO
     Route: 048
     Dates: start: 20060101, end: 20060101
  2. NAMENDA [Suspect]
     Indication: DEMENTIA
     Dosage: 5 MG BID PO
     Route: 048
     Dates: start: 20060101, end: 20060101
  3. NAMENDA [Suspect]
     Indication: DEMENTIA
     Dosage: 15 MG QD PO
     Route: 048
     Dates: start: 20060101
  4. PROPRANOLOL [Concomitant]
  5. LEVOXYL [Concomitant]
  6. ESTRADIOL INJ [Concomitant]
  7. ASPIRIN [Concomitant]
  8. ARICEPT [Concomitant]
  9. GABAPENTIN [Concomitant]
  10. ACETAMINOPHEN AND CODEINE PHOSPHATE [Concomitant]
  11. HYDROXYZINE [Concomitant]
  12. MECLIZINE [Concomitant]

REACTIONS (1)
  - HEADACHE [None]
